FAERS Safety Report 24274861 (Version 2)
Quarter: 2024Q3

REPORT INFORMATION
  Report Type: Spontaneous
  Country: US (occurrence: US)
  Receive Date: 20240902
  Receipt Date: 20240912
  Transmission Date: 20241017
  Serious: No
  Sender: BOEHRINGER INGELHEIM
  Company Number: US-BoehringerIngelheim-2024-BI-049105

PATIENT
  Age: 53 Year
  Sex: Male

DRUGS (3)
  1. JARDIANCE [Suspect]
     Active Substance: EMPAGLIFLOZIN
     Indication: Product used for unknown indication
     Dosage: DAILY, UNKNOWN
     Dates: start: 2020
  2. MOUNJARO [Suspect]
     Active Substance: TIRZEPATIDE
     Indication: Type 2 diabetes mellitus
     Dosage: UNKNOWN, UNKNOWN
     Route: 058
     Dates: start: 20240327
  3. MOUNJARO [Suspect]
     Active Substance: TIRZEPATIDE
     Indication: Obesity
     Dosage: UNKNOWN
     Route: 058
     Dates: start: 20240327

REACTIONS (3)
  - Feeling abnormal [Recovered/Resolved]
  - Micturition urgency [Recovered/Resolved]
  - Nausea [Unknown]
